FAERS Safety Report 17457372 (Version 1)
Quarter: 2020Q1

REPORT INFORMATION
  Report Type: Report from Study
  Country: DE (occurrence: DE)
  Receive Date: 20200225
  Receipt Date: 20200225
  Transmission Date: 20200409
  Serious: Yes (Other)
  Sender: FDA-Public Use
  Company Number: DE-BAXTER-2020BAX004158

PATIENT
  Age: 32 Year
  Sex: Male
  Weight: 99 kg

DRUGS (4)
  1. DOXIL [Suspect]
     Active Substance: DOXORUBICIN HYDROCHLORIDE
     Dosage: 21.86-10 Q2W* 17 MONTHS
     Route: 042
     Dates: start: 20000222, end: 20010728
  2. TAMOXIFEN [Concomitant]
     Active Substance: TAMOXIFEN
     Indication: GLIOBLASTOMA
     Dosage: 400 MG QD 17 MONTH
     Route: 048
     Dates: start: 20000222, end: 20010728
  3. DOXIL [Suspect]
     Active Substance: DOXORUBICIN HYDROCHLORIDE
     Dosage: 21.86 MG Q2W 6 MONTHS
     Route: 042
     Dates: start: 20000222, end: 200009
  4. DOXIL [Suspect]
     Active Substance: DOXORUBICIN HYDROCHLORIDE
     Indication: GLIOBLASTOMA
     Dosage: 10 MG/M^2 11 MONTHS
     Route: 042
     Dates: start: 200009, end: 20010728

REACTIONS (2)
  - Neutropenia [Recovered/Resolved]
  - Leukopenia [Recovered/Resolved]

NARRATIVE: CASE EVENT DATE: 20000904
